FAERS Safety Report 20422868 (Version 1)
Quarter: 2022Q1

REPORT INFORMATION
  Report Type: Spontaneous
  Country: DE (occurrence: None)
  Receive Date: 20220203
  Receipt Date: 20220203
  Transmission Date: 20220423
  Serious: Yes (Other)
  Sender: FDA-Public Use
  Company Number: 2022A049897

PATIENT
  Age: 47 Year
  Sex: Female

DRUGS (2)
  1. BUDESONIDE\FORMOTEROL [Suspect]
     Active Substance: BUDESONIDE\FORMOTEROL
     Dosage: 60 / 4.5 UG 30D 2X2 STROKES, THEN 60 / 4.5 2X1 STROKE
     Route: 055
  2. BUDESONIDE\FORMOTEROL [Suspect]
     Active Substance: BUDESONIDE\FORMOTEROL
     Dosage: 2 X 1-2 STROKES FOR APPROXIMATELY 1 WEEK
     Route: 055

REACTIONS (4)
  - COVID-19 [Unknown]
  - Pneumonia [Recovering/Resolving]
  - Bronchial hyperreactivity [Unknown]
  - Off label use [Unknown]
